FAERS Safety Report 4714160-6 (Version None)
Quarter: 2005Q3

REPORT INFORMATION
  Report Type: 
  Country: None (occurrence: None)
  Receive Date: 20050701
  Receipt Date: 20040811
  Transmission Date: 20060218
  Serious: Yes (Other)
  Sender: FDA-Public Use
  Company Number: 2004055437

PATIENT
  Age: 19 Year
  Sex: Male
  Weight: 127.0072 kg

DRUGS (5)
  1. ZOLOFT [Suspect]
     Indication: ANHEDONIA
     Dosage: 25 MG (25 MG, 1 IN 1 D),
     Dates: start: 20030101, end: 20040401
  2. ZOLOFT [Suspect]
     Indication: ANXIETY
     Dosage: 25 MG (25 MG, 1 IN 1 D),
     Dates: start: 20030101, end: 20040401
  3. ZOLOFT [Suspect]
     Indication: DEPRESSED MOOD
     Dosage: 25 MG (25 MG, 1 IN 1 D),
     Dates: start: 20030101, end: 20040401
  4. ZOLOFT [Suspect]
     Indication: INSOMNIA
     Dosage: 25 MG (25 MG, 1 IN 1 D),
     Dates: start: 20030101, end: 20040401
  5. ZOLOFT [Suspect]
     Indication: LETHARGY
     Dosage: 25 MG (25 MG, 1 IN 1 D),
     Dates: start: 20030101, end: 20040401

REACTIONS (5)
  - AGITATION [None]
  - DRUG INEFFECTIVE [None]
  - INSOMNIA [None]
  - MENTAL DISORDER [None]
  - MURDER [None]
